FAERS Safety Report 5034183-X (Version None)
Quarter: 2006Q2

REPORT INFORMATION
  Report Type: 
  Country: None (occurrence: None)
  Receive Date: 20060626
  Receipt Date: 20060616
  Transmission Date: 20061013
  Serious: Yes (Other)
  Sender: FDA-Public Use
  Company Number: US-GLAXOSMITHKLINE-A0609524A

PATIENT
  Age: 55 Year
  Sex: Female

DRUGS (13)
  1. REQUIP [Suspect]
     Indication: RESTLESS LEGS SYNDROME
     Dosage: .5MG AT NIGHT
     Route: 048
     Dates: start: 20060612
  2. NITROUS OXIDE W/ OXYGEN [Suspect]
     Indication: DENTAL OPERATION
     Route: 055
     Dates: start: 20060613, end: 20060613
  3. CALTRATE [Concomitant]
  4. GLUCOPHAGE [Concomitant]
  5. LIPITOR [Concomitant]
  6. BUSPAR [Concomitant]
  7. LEVOXYL [Concomitant]
  8. PREMARIN [Concomitant]
  9. WELLBUTRIN [Concomitant]
  10. ASPIRIN [Concomitant]
  11. PROTONIX [Concomitant]
  12. FOLIC ACID [Concomitant]
  13. TRAZODONE HCL [Concomitant]

REACTIONS (5)
  - APHASIA [None]
  - DRUG INTERACTION [None]
  - HANGOVER [None]
  - IMMOBILE [None]
  - NERVOUS SYSTEM DISORDER [None]
